FAERS Safety Report 23341575 (Version 1)
Quarter: 2023Q4

REPORT INFORMATION
  Report Type: Spontaneous
  Country: US (occurrence: None)
  Receive Date: 20231226
  Receipt Date: 20231226
  Transmission Date: 20240109
  Serious: Yes (Hospitalization)
  Sender: FDA-Public Use
  Company Number: None

PATIENT
  Age: 63 Year
  Sex: Female

DRUGS (1)
  1. CHLORTHALIDONE [Suspect]
     Active Substance: CHLORTHALIDONE
     Dates: start: 20231130

REACTIONS (2)
  - Hyponatraemia [None]
  - Blood osmolarity decreased [None]

NARRATIVE: CASE EVENT DATE: 20231130
